FAERS Safety Report 8270441-3 (Version None)
Quarter: 2012Q2

REPORT INFORMATION
  Report Type: 
  Country: None (occurrence: None)
  Receive Date: 20120410
  Receipt Date: 20120403
  Transmission Date: 20120825
  Serious: Yes (Hospitalization, Other)
  Sender: FDA-Public Use
  Company Number: PHHY2012CA007464

PATIENT
  Sex: Female

DRUGS (2)
  1. SANDOSTATIN LAR [Suspect]
     Indication: CARCINOID TUMOUR
     Dosage: 40 MG, EVERY 4 WEEKS
     Route: 030
     Dates: start: 20050623
  2. AFINITOR [Suspect]
     Indication: CARCINOID TUMOUR
     Dosage: 10 MG EVERY DAY
     Route: 048
     Dates: start: 20110227

REACTIONS (11)
  - BLOOD PRESSURE INCREASED [None]
  - MUSCLE SPASMS [None]
  - CHROMATURIA [None]
  - INJECTION SITE DISCOLOURATION [None]
  - WOUND [None]
  - SKIN DISCOLOURATION [None]
  - PAIN IN EXTREMITY [None]
  - BLOOD GLUCOSE INCREASED [None]
  - MOBILITY DECREASED [None]
  - MICTURITION DISORDER [None]
  - POLYURIA [None]
